FAERS Safety Report 12920589 (Version 1)
Quarter: 2016Q4

REPORT INFORMATION
  Report Type: Spontaneous
  Country: US (occurrence: US)
  Receive Date: 20161106
  Receipt Date: 20161106
  Transmission Date: 20170207
  Serious: No
  Sender: FDA-Public Use
  Company Number: None

PATIENT
  Age: 66 Year
  Sex: Female
  Weight: 75.15 kg

DRUGS (12)
  1. NASACORT [Concomitant]
     Active Substance: TRIAMCINOLONE ACETONIDE
  2. CLARITIN [Concomitant]
     Active Substance: LORATADINE
  3. CALCIUM [Concomitant]
     Active Substance: CALCIUM
  4. ELIQUIS [Concomitant]
     Active Substance: APIXABAN
  5. METOPROLOL. [Concomitant]
     Active Substance: METOPROLOL
  6. LECITHIN [Concomitant]
     Active Substance: LECITHIN
  7. MULTI-VITAMIN [Concomitant]
     Active Substance: .ALPHA.-TOCOPHEROL ACETATE, DL-\ASCORBIC ACID\CYANOCOBALAMIN\FLUORIDE ION\FOLIC ACID\NIACIN\PYRIDOXINE\RIBOFLAVIN\THIAMINE\VITAMIN A\VITAMIN D
  8. PROBIOTIC [Concomitant]
     Active Substance: PROBIOTICS NOS
  9. ZINC [Concomitant]
     Active Substance: ZINC\ZINC CHLORIDE
  10. COD LIVER OIL [Concomitant]
     Active Substance: COD LIVER OIL
  11. METOPROLOL SUCC ER TABS 25MG DR REDDY^S [Suspect]
     Active Substance: METOPROLOL SUCCINATE
     Indication: ATRIAL FIBRILLATION
     Dosage: ?          QUANTITY:1 TABLET(S);?
     Route: 048
     Dates: start: 20161003, end: 20161025
  12. SYNTHROID [Concomitant]
     Active Substance: LEVOTHYROXINE SODIUM

REACTIONS (2)
  - Product substitution issue [None]
  - Feeling abnormal [None]

NARRATIVE: CASE EVENT DATE: 20161019
